FAERS Safety Report 8429777-5 (Version None)
Quarter: 2012Q2

REPORT INFORMATION
  Report Type: 
  Country: None (occurrence: None)
  Receive Date: 20120612
  Receipt Date: 20120604
  Transmission Date: 20120825
  Serious: No
  Sender: FDA-Public Use
  Company Number: US-BAYER-2012-056291

PATIENT
  Age: 31 Year
  Sex: Female
  Weight: 77 kg

DRUGS (10)
  1. ALEVE (CAPLET) [Suspect]
     Indication: PAIN
     Dosage: DAILY DOSE 440 MG
  2. RIFAMPIN [Concomitant]
     Indication: MENINGITIS
     Dosage: 600 MG, BID
     Dates: start: 20120417, end: 20120420
  3. ULTRAM [Suspect]
     Indication: PAIN
     Dosage: 100 MG, QID
  4. PROZAC [Concomitant]
     Indication: DEPRESSION
  5. PREDNISONE TAB [Suspect]
     Dosage: UNK
     Route: 048
     Dates: start: 20120521
  6. PREDNISONE TAB [Suspect]
     Indication: PAIN
     Dosage: UNK
     Route: 048
     Dates: start: 20120428, end: 20120507
  7. AMBIEN [Concomitant]
     Indication: SLEEP DISORDER THERAPY
  8. IBUPROFEN [Suspect]
     Indication: PAIN
     Dosage: DAILY DOSE 2400 MG
  9. BENADRYL [Concomitant]
     Indication: URTICARIA
  10. ACETAMINOPHEN [Suspect]
     Indication: PAIN
     Dosage: DAILY DOSE 3 G

REACTIONS (2)
  - DYSPEPSIA [None]
  - NAUSEA [None]
